FAERS Safety Report 10173419 (Version 1)
Quarter: 2014Q2

REPORT INFORMATION
  Report Type: Spontaneous
  Country: MY (occurrence: MY)
  Receive Date: 20140515
  Receipt Date: 20140515
  Transmission Date: 20141212
  Serious: Yes (Hospitalization)
  Sender: FDA-Public Use
  Company Number: MY-INCYTE CORPORATION-2014IN001287

PATIENT
  Age: 70 Year
  Sex: Female

DRUGS (3)
  1. JAKAVI [Suspect]
     Dosage: 20 MG, BID
     Route: 065
  2. JAKAVI [Suspect]
     Dosage: 1.5 DF (TABLETS) BID
     Route: 065
  3. JAKAVI [Suspect]
     Dosage: 20 MG, BID
     Route: 065

REACTIONS (4)
  - Dyspnoea [Recovered/Resolved]
  - Febrile neutropenia [Recovered/Resolved]
  - Haemoglobin decreased [Recovered/Resolved]
  - Incorrect dose administered [Recovered/Resolved]
